FAERS Safety Report 23606738 (Version 2)
Quarter: 2024Q1

REPORT INFORMATION
  Report Type: Spontaneous
  Country: CH (occurrence: None)
  Receive Date: 20240307
  Receipt Date: 20240308
  Transmission Date: 20240410
  Serious: Yes (Other)
  Sender: FDA-Public Use
  Company Number: 2024A055716

PATIENT
  Age: 87 Year
  Sex: Female

DRUGS (21)
  1. QUETIAPINE FUMARATE [Suspect]
     Active Substance: QUETIAPINE FUMARATE
     Dosage: 12.5MG IN THE EVENING AT BEDTIME, WITH 12.5MG IN RESERVE
     Dates: start: 20240103
  2. QUETIAPINE FUMARATE [Suspect]
     Active Substance: QUETIAPINE FUMARATE
     Dosage: 12.5MG IN THE EVENING AT BEDTIME, WITH 12.5MG IN RESERVE
     Dates: start: 20240115
  3. QUETIAPINE FUMARATE [Suspect]
     Active Substance: QUETIAPINE FUMARATE
     Dosage: 12.5MG IN THE EVENING AT BEDTIME, WITH 12.5MG IN RESERVE
     Dates: start: 20240123
  4. CLOMETHIAZOLE [Suspect]
     Active Substance: CLOMETHIAZOLE
     Dates: start: 20240116, end: 20240122
  5. CLOMETHIAZOLE [Suspect]
     Active Substance: CLOMETHIAZOLE
     Dates: start: 20240123, end: 20240125
  6. CLOMETHIAZOLE [Suspect]
     Active Substance: CLOMETHIAZOLE
     Dates: start: 20240126, end: 20240209
  7. CLOMETHIAZOLE [Suspect]
     Active Substance: CLOMETHIAZOLE
     Dates: start: 20240116, end: 20240209
  8. SERTRALINE [Suspect]
     Active Substance: SERTRALINE HYDROCHLORIDE
     Dates: start: 20240105, end: 20240108
  9. SERTRALINE [Suspect]
     Active Substance: SERTRALINE HYDROCHLORIDE
     Dates: start: 20240109, end: 20240116
  10. SERTRALINE [Suspect]
     Active Substance: SERTRALINE HYDROCHLORIDE
     Dates: start: 20240117, end: 20240122
  11. SERTRALINE [Suspect]
     Active Substance: SERTRALINE HYDROCHLORIDE
     Dates: start: 20240123, end: 20240207
  12. SERTRALINE [Suspect]
     Active Substance: SERTRALINE HYDROCHLORIDE
     Dosage: IN THE EVENING
     Dates: start: 20240208
  13. IRON [Suspect]
     Active Substance: IRON
     Dates: start: 20240113
  14. TORSEMIDE [Concomitant]
     Active Substance: TORSEMIDE
  15. CALCIUM\CHOLECALCIFEROL [Concomitant]
     Active Substance: CALCIUM\CHOLECALCIFEROL
     Dosage: 1000MG/800UI PER DAY
  16. FIG FRUIT OIL\SORBITOL [Concomitant]
     Active Substance: FIG FRUIT OIL\SORBITOL
  17. MOVICOL [Concomitant]
     Active Substance: POLYETHYLENE GLYCOL 3350\POTASSIUM CHLORIDE\SODIUM BICARBONATE\SODIUM CHLORIDE
     Dosage: 2 SACHETS 2X/J ; AS NECESSARY
  18. SODIUM PICOSULFATE [Concomitant]
     Active Substance: SODIUM PICOSULFATE
     Dosage: 2X/J ; AS NECESSARY
  19. FLECTOR [Concomitant]
     Active Substance: DICLOFENAC EPOLAMINE
     Dosage: 1 APPLICATION 1X/J ; AS NECESSARY
  20. FORTALIS BALSAM [Concomitant]
     Dosage: 3 APPLICATIONS PER DAY; AS NECESSARY
  21. FREKA-CLYSS [Concomitant]
     Dosage: AS NECESSARY

REACTIONS (1)
  - Cholestatic liver injury [Recovering/Resolving]

NARRATIVE: CASE EVENT DATE: 20240122
